FAERS Safety Report 8016161-1 (Version None)
Quarter: 2011Q4

REPORT INFORMATION
  Report Type: 
  Country: None (occurrence: None)
  Receive Date: 20111230
  Receipt Date: 20111228
  Transmission Date: 20120403
  Serious: Yes (Disabling)
  Sender: FDA-Public Use
  Company Number: JP-BRACCO-003863

PATIENT
  Sex: Male
  Weight: 69 kg

DRUGS (9)
  1. IOPAMIDOL [Suspect]
     Indication: COLON CANCER
     Route: 042
     Dates: start: 20100803, end: 20100803
  2. IOPAMIDOL [Suspect]
     Indication: COMPUTERISED TOMOGRAM
     Route: 042
     Dates: start: 20100803, end: 20100803
  3. MAGMITT [Concomitant]
     Indication: PRODUCT USED FOR UNKNOWN INDICATION
     Route: 048
     Dates: start: 20100410
  4. PLETAL [Concomitant]
     Indication: PRODUCT USED FOR UNKNOWN INDICATION
     Route: 048
     Dates: start: 20090609
  5. PRAVASTATIN SODIUM [Concomitant]
     Indication: PRODUCT USED FOR UNKNOWN INDICATION
     Route: 048
     Dates: start: 20080108
  6. ALLOPURINOL [Concomitant]
     Indication: PRODUCT USED FOR UNKNOWN INDICATION
     Route: 048
     Dates: start: 20080108
  7. ADALAT [Concomitant]
     Indication: HYPERTENSION
     Route: 048
     Dates: start: 20080108
  8. IOPAMIDOL [Concomitant]
     Route: 042
     Dates: start: 20100402, end: 20100402
  9. CONTRAST MEDIA [Concomitant]
     Indication: COMPUTERISED TOMOGRAM
     Dates: start: 20100101, end: 20100101

REACTIONS (1)
  - STEVENS-JOHNSON SYNDROME [None]
